FAERS Safety Report 6643126-4 (Version None)
Quarter: 2010Q1

REPORT INFORMATION
  Report Type: 
  Country: None (occurrence: None)
  Receive Date: 20100319
  Receipt Date: 20100309
  Transmission Date: 20100710
  Serious: Yes (Other)
  Sender: FDA-Public Use
  Company Number: CA-ABBOTT-10P-028-0623077-00

PATIENT
  Sex: Male
  Weight: 74.002 kg

DRUGS (4)
  1. MAVIK [Suspect]
     Indication: HYPERTENSION
     Dates: start: 20090301, end: 20091130
  2. MAVIK [Suspect]
     Route: 048
     Dates: start: 20100201, end: 20100208
  3. HYDROCHLOROTHIAZIDE [Concomitant]
     Indication: HYPERTENSION
     Dosage: .50 MG ONLY
     Dates: start: 20091121
  4. LIPITOR [Concomitant]
     Indication: BLOOD CHOLESTEROL INCREASED
     Dates: start: 20090320

REACTIONS (4)
  - CHEILITIS [None]
  - RASH PRURITIC [None]
  - THROAT IRRITATION [None]
  - URTICARIA [None]
